FAERS Safety Report 9300759 (Version 1)
Quarter: 2013Q2

REPORT INFORMATION
  Report Type: Spontaneous
  Country: ES (occurrence: ES)
  Receive Date: 20130521
  Receipt Date: 20130521
  Transmission Date: 20140414
  Serious: Yes (Hospitalization, Other)
  Sender: FDA-Public Use
  Company Number: ES-ROXANE LABORATORIES, INC.-2013-RO-00804RO

PATIENT
  Age: 28 Year
  Sex: Female

DRUGS (16)
  1. METHADONE [Suspect]
     Indication: PAIN
     Route: 048
     Dates: start: 200905
  2. KETAMINE [Suspect]
     Indication: PAIN
     Route: 058
  3. GABAPENTIN [Concomitant]
  4. VENLAFAXINE [Concomitant]
  5. PARACETAMOL [Concomitant]
     Route: 048
  6. BACLOFEN [Concomitant]
  7. KETOROLAC [Concomitant]
  8. DEXAMETHASONE [Concomitant]
     Dosage: 4 MG
  9. PANTOPRAZOLE [Concomitant]
     Dosage: 40 MG
  10. MAGNESIUM HYDROXIDE [Concomitant]
  11. SENNA ALKALOIDS [Concomitant]
  12. FUROSEMIDE [Concomitant]
     Dosage: 40 MG
  13. SPIRONOLACTONE [Concomitant]
     Dosage: 100 MG
  14. HALOPERIDOL [Concomitant]
  15. DIAZEPAM [Concomitant]
     Dosage: 5 MG
  16. LOW-MOLECULAR-WEIGHT HEPARIN [Concomitant]
     Route: 058

REACTIONS (15)
  - Breakthrough pain [Unknown]
  - Pneumonia [Unknown]
  - Influenza [Unknown]
  - Pulmonary embolism [Unknown]
  - Fall [Unknown]
  - Pubis fracture [Unknown]
  - Cardiotoxicity [Unknown]
  - Constipation [Unknown]
  - Cushing^s syndrome [Unknown]
  - Urinary incontinence [Unknown]
  - Somnolence [Recovered/Resolved]
  - Dizziness [Recovered/Resolved]
  - Hallucination, visual [Recovered/Resolved]
  - Sleep apnoea syndrome [Recovered/Resolved]
  - Cauda equina syndrome [Unknown]
